FAERS Safety Report 4323078-2 (Version None)
Quarter: 2004Q1

REPORT INFORMATION
  Report Type: 
  Country: None (occurrence: None)
  Receive Date: 20040319
  Receipt Date: 20040311
  Transmission Date: 20041129
  Serious: Yes (Other)
  Sender: FDA-Public Use
  Company Number: ENT 2004-0017

PATIENT
  Age: 76 Year
  Sex: Male

DRUGS (5)
  1. COMTAN [Suspect]
     Indication: PARKINSON'S DISEASE
     Dosage: 800 MG (200 MG, 4 IN 1 D)
     Route: 048
     Dates: start: 20030721
  2. SINEMET CR [Concomitant]
  3. ARICEPT [Concomitant]
  4. DOCUSATE SODIUM [Concomitant]
  5. METAMUCIL ^PROCTER + GAMBLE^ [Concomitant]

REACTIONS (3)
  - DYSPHONIA [None]
  - HALLUCINATION, VISUAL [None]
  - SCREAMING [None]
